FAERS Safety Report 21787152 (Version 1)
Quarter: 2022Q4

REPORT INFORMATION
  Report Type: Spontaneous
  Country: US (occurrence: US)
  Receive Date: 20221228
  Receipt Date: 20221228
  Transmission Date: 20230113
  Serious: No
  Sender: FDA-Public Use
  Company Number: US-BRISTOL-MYERS SQUIBB COMPANY-2022-158203

PATIENT
  Age: 64 Year
  Sex: Female
  Weight: 122.92 kg

DRUGS (1)
  1. ELIQUIS [Suspect]
     Active Substance: APIXABAN
     Indication: Thrombosis prophylaxis
     Route: 048
     Dates: start: 20220801

REACTIONS (7)
  - Circumstance or information capable of leading to device use error [Unknown]
  - Arthralgia [Unknown]
  - Swelling [Unknown]
  - Contusion [Unknown]
  - Overweight [Unknown]
  - Back pain [Unknown]
  - Musculoskeletal stiffness [Unknown]
